FAERS Safety Report 13791665 (Version 1)
Quarter: 2017Q3

REPORT INFORMATION
  Report Type: Spontaneous
  Country: PT (occurrence: PT)
  Receive Date: 20170725
  Receipt Date: 20170725
  Transmission Date: 20171127
  Serious: Yes (Other)
  Sender: FDA-Public Use
  Company Number: PT-009507513-1707PRT009862

PATIENT
  Age: 75 Year
  Sex: Male
  Weight: 69 kg

DRUGS (4)
  1. AERIUS [Suspect]
     Active Substance: DESLORATADINE
     Indication: RHINITIS ALLERGIC
     Dosage: HE JUST TOOK ONE OF THE MEDICATION AND STOPPED BECAUSE OF RAM
     Route: 048
     Dates: start: 20170717, end: 20170717
  2. PERMIXON [Concomitant]
     Active Substance: HERBALS\SAW PALMETTO
     Dosage: 1 DF, QD
  3. AAS [Concomitant]
     Active Substance: ASPIRIN
     Dosage: 1 DF, QD
     Route: 048
  4. PRETERAX (INDAPAMIDE (+) PERINDOPRIL ARGININE) [Interacting]
     Active Substance: INDAPAMIDE\PERINDOPRIL
     Indication: ESSENTIAL HYPERTENSION
     Dosage: 1 DF, QD
     Route: 048

REACTIONS (4)
  - Dry eye [Recovered/Resolved]
  - Vision blurred [Recovered/Resolved]
  - Visual impairment [Recovered/Resolved]
  - Abdominal pain [Recovered/Resolved]

NARRATIVE: CASE EVENT DATE: 20170717
